FAERS Safety Report 8716306 (Version 2)
Quarter: 2013Q4

REPORT INFORMATION
  Report Type: Spontaneous
  Country: DE (occurrence: DE)
  Receive Date: 20120810
  Receipt Date: 20131031
  Transmission Date: 20140711
  Serious: Yes (Hospitalization, Disabling)
  Sender: FDA-Public Use
  Company Number: DE-009507513-1208DEU002924

PATIENT
  Age: 78 Year
  Sex: Female

DRUGS (7)
  1. JANUVIA [Suspect]
     Indication: DIABETES MELLITUS
     Dosage: UNK
     Route: 048
     Dates: start: 2011
  2. AMLODIPINE [Concomitant]
  3. CLOPIDOGREL [Concomitant]
  4. IBUPROFEN [Concomitant]
  5. COSOPT [Concomitant]
     Route: 047
  6. METFORMIN [Concomitant]
  7. RAMILICH [Concomitant]

REACTIONS (2)
  - Cerebrovascular accident [Unknown]
  - Ageusia [Unknown]
